FAERS Safety Report 8583124 (Version 4)
Quarter: 2013Q2

REPORT INFORMATION
  Report Type: Spontaneous
  Country: AU (occurrence: AU)
  Receive Date: 20120529
  Receipt Date: 20130412
  Transmission Date: 20140414
  Serious: Yes (Hospitalization, Other)
  Sender: FDA-Public Use
  Company Number: AU-UCBSA-057780

PATIENT
  Age: 59 Year
  Sex: Female

DRUGS (15)
  1. CIMZIA [Suspect]
     Indication: RHEUMATOID ARTHRITIS
     Route: 058
     Dates: start: 2012, end: 20120514
  2. FILGRASTIM [Suspect]
     Indication: FEBRILE NEUTROPENIA
     Dosage: EVERY OTHER DAY
     Dates: start: 20120521, end: 20120601
  3. FILGRASTIM [Suspect]
     Indication: FEBRILE NEUTROPENIA
     Dosage: DAILY; 200
     Route: 058
     Dates: start: 20120517, end: 20120520
  4. PREDNISOLONE [Concomitant]
     Indication: RASH
     Dosage: DOSE INCREASED, TO BE WEANED
     Dates: start: 201205
  5. PREDNISOLONE [Concomitant]
     Indication: RASH
     Dosage: QUANTITY:60
  6. FOLIC ACID [Concomitant]
     Dosage: QUANTITY :200
     Route: 048
  7. CEFAPIME [Concomitant]
     Indication: FEBRILE NEUTROPENIA
     Route: 042
     Dates: start: 20120517
  8. ARTIFICIAL TEARS [Concomitant]
     Dosage: 1 G/G EYE OINTMENT 3.5 G
  9. CHOLECALCIFEROL [Concomitant]
     Dosage: QUANTITY :60
     Route: 048
  10. CIPROFLOXACIN [Concomitant]
     Indication: PYREXIA
     Dosage: QUANTITY :14, 1 HOUR BEFORE OR TWO HOURS AFTER FOOD
     Route: 048
  11. BACTROBAN [Concomitant]
     Dosage: 2% (20 MG/G) ,15 G
     Route: 061
  12. PANTOPRAZOLE [Concomitant]
     Dosage: QUANTITY:30
     Route: 048
  13. COVERSYL [Concomitant]
     Dosage: QUANTITY:30
     Route: 048
  14. MUPIROCIN [Concomitant]
  15. PERINDOPRIL [Concomitant]

REACTIONS (4)
  - Febrile neutropenia [Recovered/Resolved with Sequelae]
  - Rheumatoid arthritis [Recovered/Resolved]
  - White blood cell count increased [Recovered/Resolved]
  - Drug eruption [Recovered/Resolved]
